FAERS Safety Report 6530175-X (Version None)
Quarter: 2009Q4

REPORT INFORMATION
  Report Type: 
  Country: None (occurrence: None)
  Receive Date: 20091231
  Receipt Date: 20091217
  Transmission Date: 20100525
  Serious: Yes (Hospitalization, Other)
  Sender: FDA-Public Use
  Company Number: WAES 0911USA02750

PATIENT
  Age: 60 Year
  Sex: Female
  Weight: 46.7205 kg

DRUGS (3)
  1. CAP VORINOSTAT [Suspect]
     Indication: PROPHYLAXIS
     Dosage: PO
     Route: 048
     Dates: end: 20090820
  2. TACROLIMUS [Suspect]
     Indication: PROPHYLAXIS
     Dosage: PO
     Route: 048
  3. MYCOPHENOLATE MOFETIL [Suspect]
     Indication: PROPHYLAXIS

REACTIONS (19)
  - ACUTE GRAFT VERSUS HOST DISEASE IN INTESTINE [None]
  - ANXIETY [None]
  - APOPTOSIS [None]
  - CYTOMEGALOVIRUS INFECTION [None]
  - DECREASED APPETITE [None]
  - EFFUSION [None]
  - ENTEROCOCCAL INFECTION [None]
  - ESCHERICHIA INFECTION [None]
  - FLUID INTAKE REDUCED [None]
  - GASTROINTESTINAL DISORDER [None]
  - GASTROINTESTINAL INFLAMMATION [None]
  - GRAFT VERSUS HOST DISEASE [None]
  - HYPOPHAGIA [None]
  - NAUSEA [None]
  - OSTEOPOROSIS [None]
  - RIB FRACTURE [None]
  - SIGNET-RING CELL CARCINOMA [None]
  - THERAPEUTIC AGENT TOXICITY [None]
  - TREATMENT NONCOMPLIANCE [None]
